FAERS Safety Report 7927237-9 (Version None)
Quarter: 2011Q4

REPORT INFORMATION
  Report Type: 
  Country: None (occurrence: None)
  Receive Date: 20111118
  Receipt Date: 20111110
  Transmission Date: 20120403
  Serious: Yes (Hospitalization)
  Sender: FDA-Public Use
  Company Number: US-UCBSA-035628

PATIENT
  Age: 24 Year
  Sex: Male
  Weight: 71.21 kg

DRUGS (13)
  1. MESALAMINE [Concomitant]
     Indication: CROHN'S DISEASE
     Dates: start: 20110105
  2. LEVOFLOXACIN [Concomitant]
     Indication: ABSCESS
     Dates: start: 20110607, end: 20110609
  3. ACETAMINOPHEN [Concomitant]
     Indication: CROHN'S DISEASE
  4. BUDESONIDE [Concomitant]
     Indication: CROHN'S DISEASE
     Dates: start: 20110106
  5. FLAGYL [Concomitant]
     Dates: start: 20110104, end: 20110104
  6. PENTASA [Concomitant]
     Indication: CROHN'S DISEASE
     Route: 048
     Dates: start: 20110105
  7. GABAPENTIN [Concomitant]
     Indication: NEURALGIA
     Route: 048
     Dates: start: 20110101
  8. DILAUDID [Concomitant]
     Indication: PAIN
     Dosage: 1-2 TABS Q6H PRN
  9. LEVOFLOXACIN [Concomitant]
     Dates: start: 20110104, end: 20110104
  10. CIMZIA [Suspect]
     Indication: CROHN'S DISEASE
     Route: 058
     Dates: start: 20110425, end: 20110609
  11. ENTOCORT EC [Concomitant]
     Indication: CROHN'S DISEASE
     Route: 048
     Dates: start: 20110106
  12. CONCERTA [Concomitant]
     Indication: ATTENTION DEFICIT/HYPERACTIVITY DISORDER
     Route: 048
  13. FLAGYL [Concomitant]
     Indication: ABSCESS
     Dates: start: 20110607, end: 20110609

REACTIONS (3)
  - FISTULA [None]
  - SUBCUTANEOUS ABSCESS [None]
  - PELVIC ABSCESS [None]
